FAERS Safety Report 21329834 (Version 1)
Quarter: 2022Q3

REPORT INFORMATION
  Report Type: Spontaneous
  Country: US (occurrence: US)
  Receive Date: 20220913
  Receipt Date: 20220913
  Transmission Date: 20221026
  Serious: Yes (Other)
  Sender: FDA-Public Use
  Company Number: US-JUBILANT CADISTA PHARMACEUTICALS-2022JUB00249

PATIENT
  Sex: Female
  Weight: 93.5 kg

DRUGS (1)
  1. PROCHLORPERAZINE MALEATE [Suspect]
     Active Substance: PROCHLORPERAZINE MALEATE
     Dosage: 10 MG, 3X/DAY (EVERY 8 HOURS, AS NEEDED)
     Route: 060
     Dates: start: 202206

REACTIONS (2)
  - Chemical burn [Not Recovered/Not Resolved]
  - Incorrect route of product administration [Unknown]

NARRATIVE: CASE EVENT DATE: 20220101
